FAERS Safety Report 9732646 (Version 3)
Quarter: 2013Q4

REPORT INFORMATION
  Report Type: Report from Study
  Country: KR (occurrence: KR)
  Receive Date: 20131204
  Receipt Date: 20131226
  Transmission Date: 20140711
  Serious: No
  Sender: FDA-Public Use
  Company Number: PHHY2013KR138718

PATIENT
  Age: 53 Year
  Sex: Male

DRUGS (21)
  1. AMN107 [Suspect]
     Indication: CHRONIC MYELOID LEUKAEMIA
     Dosage: 600 MG, DAILY
     Route: 048
     Dates: start: 20120813
  2. APETROL//MEGESTROL ACETATE [Concomitant]
     Indication: ADJUVANT THERAPY
     Dosage: 10 ML, UNK
     Route: 048
     Dates: start: 20120903, end: 20120907
  3. BANAN [Concomitant]
     Indication: INFECTION PROPHYLAXIS
     Dosage: 300 MG, UNK
     Route: 048
     Dates: start: 20120925, end: 20121006
  4. DIAMICRON MR [Concomitant]
     Indication: DIABETES MELLITUS
     Dosage: 30 MG, UNK
     Route: 048
     Dates: start: 20130218, end: 20130709
  5. GALVUS [Concomitant]
     Indication: DIABETES MELLITUS
     Dosage: 100 MG, UNK
     Route: 048
     Dates: start: 20120820
  6. GASMOTIN [Concomitant]
     Indication: PROPHYLAXIS
     Dosage: 15 MG, UNK
     Route: 048
     Dates: start: 20120903
  7. GLUCODOWN [Concomitant]
     Indication: DIABETES MELLITUS
     Dosage: 1500 MG, UNK
     Route: 048
     Dates: start: 20120820, end: 20121016
  8. GLUCOPHAGE [Concomitant]
     Indication: DIABETES MELLITUS
     Dosage: 500 MG, UNK
     Route: 048
     Dates: start: 20121231
  9. UCERAX [Concomitant]
     Indication: PRURITUS
     Dosage: 75 MG, UNK
     Route: 048
     Dates: start: 20120813, end: 20121106
  10. GLUPA [Concomitant]
     Indication: DIABETES MELLITUS
     Dosage: 1700 MG, UNK
     Route: 048
     Dates: start: 20121231
  11. KLIMAIN [Concomitant]
     Indication: PAIN PROPHYLAXIS
     Dosage: 1110 MG, UNK
     Route: 048
     Dates: start: 20120925, end: 20121006
  12. NEURONTIN [Concomitant]
     Indication: HYPOAESTHESIA
     Dosage: 900 MG, UNK
     Route: 048
     Dates: start: 20121005
  13. NEURONTIN [Concomitant]
     Indication: PARAESTHESIA
  14. MOSAONE [Concomitant]
     Indication: PROPHYLAXIS
     Dosage: 15 MG, UNK
     Route: 048
     Dates: start: 20120925, end: 20121006
  15. MUCOSTA [Concomitant]
     Indication: PROPHYLAXIS
     Dosage: 200 MG, UNK
     Route: 048
     Dates: start: 20121012, end: 20121026
  16. NEXIAM [Concomitant]
     Indication: PROPHYLAXIS
     Dosage: 20 MG, UNK
     Route: 048
     Dates: start: 20120820, end: 20130704
  17. NADIXA [Concomitant]
     Indication: DRUG ERUPTION
     Dosage: 10 MG, UNK
     Dates: start: 20120821, end: 20120822
  18. SELBEX [Concomitant]
     Indication: PROPHYLAXIS
     Dosage: 150 MG, UNK
     Route: 048
     Dates: start: 20120925, end: 20121006
  19. VARIDASE [Concomitant]
     Indication: INFLAMMATION
     Dosage: 2 DF, UNK
     Route: 048
     Dates: start: 20121012, end: 20121026
  20. VARIDASE [Concomitant]
     Indication: PROPHYLAXIS
  21. ZYLORIC [Concomitant]
     Indication: PROPHYLAXIS
     Dosage: 300 MG, UNK
     Route: 048
     Dates: start: 20120813, end: 20120820

REACTIONS (4)
  - Abdominal pain [Recovered/Resolved]
  - Pain in extremity [Recovered/Resolved]
  - Upper respiratory tract infection [Recovered/Resolved]
  - Deafness [Not Recovered/Not Resolved]
